FAERS Safety Report 9348332 (Version 2)
Quarter: 2013Q4

REPORT INFORMATION
  Report Type: Spontaneous
  Country: CA (occurrence: CA)
  Receive Date: 20130614
  Receipt Date: 20131016
  Transmission Date: 20140711
  Serious: Yes (Hospitalization)
  Sender: FDA-Public Use
  Company Number: CA-BAYER-2013-071582

PATIENT
  Age: 51 Year
  Sex: Female

DRUGS (23)
  1. AVELOX [Suspect]
     Dosage: UNK
     Route: 065
     Dates: start: 20100903, end: 20100912
  2. AVELOX [Suspect]
     Dosage: UNK
     Dates: start: 2011, end: 2011
  3. AVELOX [Suspect]
     Dosage: UNK
     Dates: start: 20120317
  4. ORENCIA [Suspect]
     Dosage: 750 MG, Q1MON
     Route: 042
     Dates: start: 20080723, end: 20080827
  5. ORENCIA [Suspect]
     Dosage: 750 MG,
     Route: 042
     Dates: start: 20080829
  6. ACTONEL [Concomitant]
  7. ASAPHEN [Concomitant]
  8. ATACAND [CANDESARTAN CILEXETIL] [Concomitant]
  9. CARBOCAL D [Concomitant]
     Route: 048
  10. CIPRALEX [Concomitant]
  11. DIVALPROEX SODIUM [Concomitant]
  12. HEPARIN SODIUM [Concomitant]
     Route: 042
  13. NOVO-HYDRAZIDE [Concomitant]
  14. PANTOLOC [Concomitant]
  15. PLAQUENIL [Concomitant]
  16. PRAVASTATIN SODIUM [Concomitant]
  17. PREDNISONE [Concomitant]
  18. SPIRIVA [Concomitant]
  19. SYMBICORT TU [Concomitant]
  20. VENTOLIN [Concomitant]
  21. VERAPAMIL HYDROCHLORIDE [Concomitant]
  22. VITAMIN B12 [Concomitant]
  23. XANAX [Concomitant]

REACTIONS (18)
  - Bronchitis [Recovered/Resolved]
  - Chronic obstructive pulmonary disease [None]
  - Bronchopneumonia [Unknown]
  - Carotid artery occlusion [Unknown]
  - Cough [Unknown]
  - Dizziness [Unknown]
  - Headache [Unknown]
  - Hypersensitivity [Unknown]
  - Hypoaesthesia [Unknown]
  - Influenza [Unknown]
  - Muscular weakness [Unknown]
  - Nausea [Unknown]
  - Oedema peripheral [Unknown]
  - Pain in extremity [Unknown]
  - Speech disorder [Unknown]
  - Transient ischaemic attack [Unknown]
  - Urinary tract infection [Unknown]
  - Vomiting [Unknown]
